FAERS Safety Report 9684380 (Version 1)
Quarter: 2013Q4

REPORT INFORMATION
  Report Type: Spontaneous
  Country: JP (occurrence: JP)
  Receive Date: 20131112
  Receipt Date: 20131112
  Transmission Date: 20140711
  Serious: Yes (Hospitalization)
  Sender: FDA-Public Use
  Company Number: JP-B.I. PHARMACEUTICALS,INC./RIDGEFIELD-2013-BI-36207NB

PATIENT
  Sex: Male

DRUGS (4)
  1. PRAZAXA [Suspect]
     Dosage: 300 MG
     Route: 065
  2. PRAZAXA [Suspect]
     Dosage: 220 MG
     Route: 065
  3. PRAZAXA [Suspect]
     Dosage: 150 MG
     Route: 065
  4. PRAZAXA [Suspect]
     Dosage: 225 MG
     Route: 065

REACTIONS (4)
  - Radioisotope scan abnormal [Unknown]
  - Gingival bleeding [Unknown]
  - Electrocardiogram abnormal [Unknown]
  - Extra dose administered [Unknown]
